FAERS Safety Report 24839270 (Version 1)
Quarter: 2025Q1

REPORT INFORMATION
  Report Type: Spontaneous
  Country: US (occurrence: US)
  Receive Date: 20250114
  Receipt Date: 20250114
  Transmission Date: 20250408
  Serious: No
  Sender: AMGEN
  Company Number: US-AMGEN-USASP2024206782

PATIENT
  Age: 65 Year
  Sex: Female

DRUGS (4)
  1. XGEVA [Suspect]
     Active Substance: DENOSUMAB
     Indication: Neoplasm malignant
     Route: 065
  2. XGEVA [Suspect]
     Active Substance: DENOSUMAB
     Indication: Metastases to bone
     Route: 065
     Dates: end: 2024
  3. XGEVA [Suspect]
     Active Substance: DENOSUMAB
     Indication: Breast cancer female
  4. XGEVA [Suspect]
     Active Substance: DENOSUMAB
     Indication: Breast cancer

REACTIONS (4)
  - Tooth disorder [Unknown]
  - Unevaluable event [Unknown]
  - Product dose omission issue [Unknown]
  - Off label use [Unknown]

NARRATIVE: CASE EVENT DATE: 20241007
